FAERS Safety Report 19302305 (Version 1)
Quarter: 2021Q2

REPORT INFORMATION
  Report Type: Report from Study
  Country: CA (occurrence: CA)
  Receive Date: 20210525
  Receipt Date: 20210525
  Transmission Date: 20210717
  Serious: Yes (Death, Hospitalization, Other)
  Sender: FDA-Public Use
  Company Number: CA-BAUSCH-BL-2021-017081

PATIENT
  Age: 69 Year
  Sex: Male

DRUGS (3)
  1. RIBAVIRIN. [Suspect]
     Active Substance: RIBAVIRIN
     Indication: CHRONIC HEPATITIS C
     Route: 065
  2. RIBAVIRIN. [Suspect]
     Active Substance: RIBAVIRIN
     Route: 065
  3. SOFOSBUVIR/VELPATASVIR [Suspect]
     Active Substance: SOFOSBUVIR\VELPATASVIR
     Indication: CHRONIC HEPATITIS C
     Route: 065

REACTIONS (6)
  - Product use complaint [Fatal]
  - Circumstance or information capable of leading to medication error [Fatal]
  - Death [Fatal]
  - Hepatic encephalopathy [Fatal]
  - Haemoglobin decreased [Fatal]
  - Dysphagia [Fatal]
